FAERS Safety Report 10192179 (Version 1)
Quarter: 2014Q2

REPORT INFORMATION
  Report Type: Report from Study
  Country: US (occurrence: US)
  Receive Date: 20140523
  Receipt Date: 20140523
  Transmission Date: 20141212
  Serious: Yes (Hospitalization)
  Sender: FDA-Public Use
  Company Number: US-TAKEDA-2014MPI001396

PATIENT
  Age: 75 Year
  Sex: Female
  Weight: 55.8 kg

DRUGS (4)
  1. VELCADE [Suspect]
     Indication: PLASMA CELL MYELOMA
     Dosage: NA
  2. DEXAMETHASONE [Suspect]
     Indication: PLASMA CELL MYELOMA
     Dosage: 40 MG, ON DAYS 1, 8, 15 AND 22
     Route: 048
     Dates: start: 20100129, end: 20140110
  3. LENALIDOMIDE [Suspect]
     Indication: PLASMA CELL MYELOMA
     Dosage: 25 MG, QD, ON DAYS 1-21
     Route: 048
     Dates: start: 20100129, end: 20140109
  4. ASPIRIN [Concomitant]
     Dosage: 325 MG, QD
     Route: 048
     Dates: start: 20100129

REACTIONS (1)
  - Aortic valve disease [Recovered/Resolved]
